FAERS Safety Report 11692738 (Version 1)
Quarter: 2015Q4

REPORT INFORMATION
  Report Type: Spontaneous
  Country: US (occurrence: None)
  Receive Date: 20151102
  Receipt Date: 20151102
  Transmission Date: 20160304
  Serious: No
  Sender: FDA-Public Use
  Company Number: None

PATIENT
  Age: 70 Year
  Sex: Male

DRUGS (2)
  1. INLYTA [Suspect]
     Active Substance: AXITINIB
     Indication: RENAL CANCER
     Dosage: THERAPY ?PER PT, BEEN ON MED } 1 YEAR CURRENLY ON MED
     Route: 048
  2. INLYTA [Suspect]
     Active Substance: AXITINIB
     Indication: MALIGNANT NEOPLASM OF UNKNOWN PRIMARY SITE
     Dosage: THERAPY ?PER PT, BEEN ON MED } 1 YEAR CURRENLY ON MED
     Route: 048

REACTIONS (1)
  - Blister [None]

NARRATIVE: CASE EVENT DATE: 201410
